FAERS Safety Report 6506707-4 (Version None)
Quarter: 2009Q4

REPORT INFORMATION
  Report Type: 
  Country: None (occurrence: None)
  Receive Date: 20091216
  Receipt Date: 20091203
  Transmission Date: 20100525
  Serious: Yes (Hospitalization)
  Sender: FDA-Public Use
  Company Number: 235276K09USA

PATIENT
  Age: 38 Year
  Sex: Female

DRUGS (9)
  1. REBIF [Suspect]
     Indication: MULTIPLE SCLEROSIS
     Dosage: 44 MCG, 3 IN 1 WEEKS, SUBCUTANEOUS
     Route: 058
     Dates: start: 20071114, end: 20090901
  2. VITAMIN B12 [Concomitant]
  3. MIRALAX [Concomitant]
  4. OMEPRAZOLE [Concomitant]
  5. URECHOLINE [Concomitant]
  6. LEXAPRO [Concomitant]
  7. NIRAVAM (ALPRAZOLAM) [Concomitant]
  8. TYLENOL ARTHRITIS (PARACETAMOL) [Concomitant]
  9. DARVOCET-N 100 [Concomitant]

REACTIONS (16)
  - BLOOD POTASSIUM DECREASED [None]
  - CHEST X-RAY ABNORMAL [None]
  - COLD SWEAT [None]
  - DEHYDRATION [None]
  - DIZZINESS [None]
  - DYSPHAGIA [None]
  - DYSPNOEA [None]
  - FATIGUE [None]
  - FEELING COLD [None]
  - HYPERHIDROSIS [None]
  - HYPERSENSITIVITY [None]
  - HYPOTENSION [None]
  - MULTIPLE SCLEROSIS RELAPSE [None]
  - OROPHARYNGEAL PAIN [None]
  - SCOTOMA [None]
  - SENSATION OF HEAVINESS [None]
